FAERS Safety Report 26206631 (Version 1)
Quarter: 2025Q4

REPORT INFORMATION
  Report Type: Spontaneous
  Country: EU (occurrence: EU)
  Receive Date: 20251229
  Receipt Date: 20251229
  Transmission Date: 20260118
  Serious: Yes (Other)
  Sender: AMGEN
  Company Number: None

PATIENT
  Age: 30 Year
  Sex: Female

DRUGS (1)
  1. NEUPOGEN [Suspect]
     Active Substance: FILGRASTIM
     Indication: Bone marrow donation
     Dosage: 60 MILLION INTERNATIONAL UNIT, QD
     Route: 058
     Dates: start: 20131128, end: 20131203

REACTIONS (1)
  - Radiologically isolated syndrome [Not Recovered/Not Resolved]

NARRATIVE: CASE EVENT DATE: 20230127
